FAERS Safety Report 11126060 (Version 1)
Quarter: 2015Q2

REPORT INFORMATION
  Report Type: Spontaneous
  Country: US (occurrence: US)
  Receive Date: 20150520
  Receipt Date: 20150520
  Transmission Date: 20150821
  Serious: Yes (Hospitalization)
  Sender: FDA-Public Use
  Company Number: US-INCYTE CORPORATION-2015IN002134

PATIENT
  Sex: Female
  Weight: 67 kg

DRUGS (14)
  1. JAKAFI [Suspect]
     Active Substance: RUXOLITINIB
     Dosage: 15 MG, BID
     Route: 048
     Dates: start: 20150418
  2. ESTRADIOL. [Concomitant]
     Active Substance: ESTRADIOL
  3. KEFLEX [Concomitant]
     Active Substance: CEPHALEXIN
  4. ADVAIR HFA [Concomitant]
     Active Substance: FLUTICASONE PROPIONATE\SALMETEROL XINAFOATE
  5. SLOW MAG                           /07370001/ [Concomitant]
  6. PREDNISONE. [Concomitant]
     Active Substance: PREDNISONE
  7. ALLOPURINOL. [Concomitant]
     Active Substance: ALLOPURINOL
  8. LEXAPRO [Concomitant]
     Active Substance: ESCITALOPRAM OXALATE
  9. LASIX [Concomitant]
     Active Substance: FUROSEMIDE
  10. PROCRIT [Concomitant]
     Active Substance: ERYTHROPOIETIN
  11. MIMVEY [Concomitant]
     Active Substance: ESTRADIOL\NORETHINDRONE ACETATE
  12. METOPROLOL [Concomitant]
     Active Substance: METOPROLOL
  13. NORETHINDRONE                      /00044901/ [Concomitant]
     Active Substance: NORETHINDRONE
  14. PROAIR HFA [Concomitant]
     Active Substance: ALBUTEROL SULFATE

REACTIONS (1)
  - Infection [Unknown]
